FAERS Safety Report 15897200 (Version 1)
Quarter: 2019Q1

REPORT INFORMATION
  Report Type: Spontaneous
  Country: GB (occurrence: GB)
  Receive Date: 20190131
  Receipt Date: 20190131
  Transmission Date: 20190417
  Serious: Yes (Hospitalization, Other)
  Sender: FDA-Public Use
  Company Number: GB-GLAXOSMITHKLINE-GB2018GSK237001

PATIENT
  Sex: Female

DRUGS (1)
  1. NIQUITIN [Suspect]
     Active Substance: NICOTINE
     Indication: PRODUCT USED FOR UNKNOWN INDICATION
     Dosage: 21 MG, UNK
     Route: 062

REACTIONS (9)
  - Loss of consciousness [Unknown]
  - Blood phosphorus increased [Unknown]
  - Atrial fibrillation [Unknown]
  - Malaise [Unknown]
  - Pulse abnormal [Unknown]
  - Hyperhidrosis [Unknown]
  - Blood potassium increased [Unknown]
  - Blood glucose increased [Unknown]
  - Product complaint [Unknown]
